FAERS Safety Report 6610099-X (Version None)
Quarter: 2010Q1

REPORT INFORMATION
  Report Type: 
  Country: None (occurrence: None)
  Receive Date: 20100302
  Receipt Date: 20100218
  Transmission Date: 20100710
  Serious: Yes (Death)
  Sender: FDA-Public Use
  Company Number: DE-ALEXION-A201000202

PATIENT

DRUGS (5)
  1. SOLIRIS [Suspect]
     Indication: HAEMOLYTIC URAEMIC SYNDROME
     Dosage: 1200 MG, SINGLE
     Route: 042
     Dates: start: 20100209, end: 20100209
  2. AMOXICILLIN AND CLAVULANATE POTASSIUM [Concomitant]
     Indication: PROPHYLAXIS
     Dosage: 1.2 G, BID
     Route: 042
     Dates: start: 20100204, end: 20100213
  3. ACYCLOVIR [Concomitant]
     Indication: HERPES VIRUS INFECTION
     Dosage: 250 MG, QD
     Route: 042
     Dates: start: 20100204, end: 20100213
  4. PANTOPRAZOLE [Concomitant]
     Indication: GASTROINTESTINAL HAEMORRHAGE
     Dosage: 40 MBQ, BID
     Route: 042
     Dates: start: 20100204, end: 20100213
  5. TORSEMIDE [Concomitant]
     Indication: RENAL FAILURE
     Dosage: 50 MG, TID
     Route: 042
     Dates: start: 20100206, end: 20100213

REACTIONS (6)
  - BRAIN HERNIATION [None]
  - BRAIN OEDEMA [None]
  - HAEMORRHAGE INTRACRANIAL [None]
  - HAEMORRHAGIC CEREBRAL INFARCTION [None]
  - OFF LABEL USE [None]
  - RESPIRATORY PARALYSIS [None]
